FAERS Safety Report 7363241-X (Version None)
Quarter: 2011Q1

REPORT INFORMATION
  Report Type: 
  Country: None (occurrence: None)
  Receive Date: 20110310
  Receipt Date: 20110223
  Transmission Date: 20110831
  Serious: Yes (Death, Hospitalization)
  Sender: FDA-Public Use
  Company Number: 2009AC000225

PATIENT
  Age: 56 Year
  Sex: Female

DRUGS (53)
  1. ASPIRIN [Concomitant]
  2. METRONIDAZOLE [Concomitant]
  3. ACETAMINOPHEN [Concomitant]
  4. KETOCONAZOLE [Concomitant]
  5. PROPOXYPHENE HCL AND ACETAMINOPHEN [Concomitant]
  6. XOPENEX [Concomitant]
  7. DIGOXIN [Suspect]
     Dosage: 0.250 MG;QD
     Dates: start: 19990301
  8. INSULIN DRIP [Concomitant]
  9. NATRECO [Concomitant]
  10. ZITHROMAX [Concomitant]
  11. GUAIFENESIN [Concomitant]
  12. BUMEX [Concomitant]
  13. INSULIN [Concomitant]
  14. POTASSIUM CHLORIDE [Concomitant]
  15. CARDIZEM [Concomitant]
  16. HYDROCHLOROTHIAZIDE [Concomitant]
  17. VITAMIN K TAB [Concomitant]
  18. DOXY HYCLATE [Concomitant]
  19. LORAZEPAM [Concomitant]
  20. OXYCODONE HCL AND ACETAMINOPHEN [Concomitant]
  21. SPIRIVA [Concomitant]
  22. COZAAR [Concomitant]
  23. DIGOXIN [Suspect]
     Dosage: 0.25 MG;QD;PO
     Route: 048
     Dates: start: 20050201
  24. NEXIUM [Concomitant]
  25. ALBUTEROL [Concomitant]
  26. AMBIEN [Concomitant]
  27. ALDACTONE [Concomitant]
  28. SINGULAIR [Concomitant]
  29. COUMADIN [Concomitant]
  30. SOLU-MEDROL [Concomitant]
  31. PROCARDIA [Concomitant]
  32. PREVPAC [Concomitant]
  33. METFORMIN [Concomitant]
  34. NIFEDIPINE [Concomitant]
  35. FLOVENT [Concomitant]
  36. SEREVENT [Concomitant]
  37. LIPITOR [Concomitant]
  38. AVANDIA [Concomitant]
  39. CORDARONE [Concomitant]
  40. VENTOLIN [Concomitant]
  41. PRAVACHOL [Concomitant]
  42. DIGOXIN [Suspect]
     Dosage: 0.125 MG;QD
     Dates: start: 20060201
  43. DIGOXIN [Suspect]
     Dosage: 0.250 MG;QD;PO
     Route: 048
     Dates: start: 19971101
  44. LEVAQUIN [Concomitant]
  45. AMIODARONE HCL [Concomitant]
  46. DOBUTREX [Concomitant]
  47. PREDNISONE [Concomitant]
  48. TRIAMTERENE [Concomitant]
  49. GLUCOPHAGE [Concomitant]
  50. ATROVENT [Concomitant]
  51. AZITHROMYCIN [Concomitant]
  52. CLONIDINE [Concomitant]
  53. LASIX [Concomitant]

REACTIONS (52)
  - MITRAL VALVE INCOMPETENCE [None]
  - ASTHMA [None]
  - CONFUSIONAL STATE [None]
  - VENTRICULAR DYSFUNCTION [None]
  - GASTRITIS [None]
  - GASTRIC ULCER [None]
  - DIABETES MELLITUS [None]
  - HYPERTENSION [None]
  - CHRONIC OBSTRUCTIVE PULMONARY DISEASE [None]
  - GOUT [None]
  - DYSPNOEA [None]
  - PNEUMONIA [None]
  - ANXIETY [None]
  - INJURY [None]
  - UNEVALUABLE EVENT [None]
  - DIARRHOEA [None]
  - HYPERCHOLESTEROLAEMIA [None]
  - LOBAR PNEUMONIA [None]
  - SURGERY [None]
  - NAUSEA [None]
  - VOMITING [None]
  - INTERNATIONAL NORMALISED RATIO INCREASED [None]
  - VENTRICULAR TACHYCARDIA [None]
  - CONDITION AGGRAVATED [None]
  - URINARY TRACT INFECTION [None]
  - TRANSIENT ISCHAEMIC ATTACK [None]
  - TRICUSPID VALVE INCOMPETENCE [None]
  - ISCHAEMIC CARDIOMYOPATHY [None]
  - ELECTROCARDIOGRAM QT PROLONGED [None]
  - CARDIAC FAILURE CONGESTIVE [None]
  - CORONARY ARTERY DISEASE [None]
  - PERIPHERAL VASCULAR DISORDER [None]
  - WHEEZING [None]
  - RENAL FAILURE [None]
  - MYOCARDIAL INFARCTION [None]
  - ULCER [None]
  - PALPITATIONS [None]
  - CONDUCTION DISORDER [None]
  - CARDIOACTIVE DRUG LEVEL BELOW THERAPEUTIC [None]
  - ATRIAL FIBRILLATION [None]
  - LUNG INFILTRATION [None]
  - BRONCHITIS [None]
  - OEDEMA [None]
  - PULMONARY OEDEMA [None]
  - RESPIRATORY FAILURE [None]
  - ECONOMIC PROBLEM [None]
  - ASTHENIA [None]
  - LEFT VENTRICULAR HYPERTROPHY [None]
  - CHRONIC SINUSITIS [None]
  - GENERALISED OEDEMA [None]
  - ANAEMIA [None]
  - BACK PAIN [None]
